FAERS Safety Report 6206406-2 (Version None)
Quarter: 2009Q2

REPORT INFORMATION
  Report Type: 
  Country: None (occurrence: None)
  Receive Date: 20090527
  Receipt Date: 20090527
  Transmission Date: 20091009
  Serious: Yes (Other)
  Sender: FDA-Public Use
  Company Number: None

PATIENT
  Age: 49 Year
  Sex: Male
  Weight: 68.2 kg

DRUGS (1)
  1. REFRESH PM LUBRICANT EYE OINTMENT [Suspect]
     Indication: CORNEAL SCAR
     Dosage: 2 GM EVERY 15 MINUTES DIRECT APPLICATION INTO RIGHT EYE
     Dates: start: 20090522

REACTIONS (7)
  - EYE DISCHARGE [None]
  - EYE INFECTION [None]
  - EYE IRRITATION [None]
  - OCULAR HYPERAEMIA [None]
  - PRODUCT CONTAINER ISSUE [None]
  - PRODUCT CONTAMINATION [None]
  - PRODUCT QUALITY ISSUE [None]
